FAERS Safety Report 12443283 (Version 3)
Quarter: 2016Q4

REPORT INFORMATION
  Report Type: Spontaneous
  Country: US (occurrence: US)
  Receive Date: 20160607
  Receipt Date: 20161114
  Transmission Date: 20170207
  Serious: No
  Sender: FDA-Public Use
  Company Number: US-GLAXOSMITHKLINE-US2016071904

PATIENT
  Sex: Female

DRUGS (9)
  1. ADVAIR DISKUS [Suspect]
     Active Substance: FLUTICASONE PROPIONATE\SALMETEROL XINAFOATE
     Indication: PRODUCT USED FOR UNKNOWN INDICATION
     Dosage: 1 PUFF(S), BID
  2. MONTELUKAST [Concomitant]
     Active Substance: MONTELUKAST SODIUM
  3. COQ10 [Concomitant]
     Active Substance: UBIDECARENONE
  4. ADVAIR HFA [Suspect]
     Active Substance: FLUTICASONE PROPIONATE\SALMETEROL XINAFOATE
     Indication: ASTHMA
     Dosage: 115/21 MCG 2 PUFF(S), BID
     Route: 055
     Dates: start: 201601
  5. VENTOLIN [Concomitant]
     Active Substance: ALBUTEROL SULFATE
  6. ADVAIR HFA [Suspect]
     Active Substance: FLUTICASONE PROPIONATE\SALMETEROL XINAFOATE
     Dosage: 230/21 MCG 2 PUFFS, BID
     Dates: start: 20160607
  7. OCTREOTIDE. [Concomitant]
     Active Substance: OCTREOTIDE
  8. CALCIUM [Concomitant]
     Active Substance: CALCIUM
  9. VITAMIN D3 [Concomitant]
     Active Substance: CHOLECALCIFEROL

REACTIONS (5)
  - Drug ineffective [Not Recovered/Not Resolved]
  - Choking sensation [Recovered/Resolved]
  - Sensation of foreign body [Not Recovered/Not Resolved]
  - Asthma [Not Recovered/Not Resolved]
  - Overdose [Recovered/Resolved]

NARRATIVE: CASE EVENT DATE: 2016
